FAERS Safety Report 8230860-8 (Version None)
Quarter: 2012Q1

REPORT INFORMATION
  Report Type: 
  Country: None (occurrence: None)
  Receive Date: 20120321
  Receipt Date: 20120302
  Transmission Date: 20120608
  Serious: Yes (Hospitalization, Other)
  Sender: FDA-Public Use
  Company Number: JPI-P-018689

PATIENT
  Age: 43 Year
  Sex: Female
  Weight: 89.8122 kg

DRUGS (20)
  1. ARMODAFINIL [Suspect]
     Indication: PRODUCT USED FOR UNKNOWN INDICATION
     Dosage: 250 MG (250 MG, 1 IN 1 D), ORAL, 250 MG (250 MG, 1 IN 1 D), ORAL
     Route: 048
  2. DOCUSATE (CAPSULES) [Concomitant]
  3. FISH OIL [Concomitant]
  4. IBUPROFEN TABLETS [Concomitant]
  5. UNSPECIFIED SEIZURE MEDICATIONS [Concomitant]
  6. ACETAMINOPHEN [Concomitant]
  7. CALCIUM +D (TABLETS) [Concomitant]
  8. XYREM [Suspect]
     Indication: CATAPLEXY
     Dosage: 4.5 GM (2.25 GM, 2 IN 1 D), ORAL, 6 GM (3 GM, 2 IN 1 D), ORAL, 7.5 GM (3.75 GM, 2 IN 1 D), ORAL, 9 G
     Route: 048
     Dates: start: 20110101, end: 20110101
  9. XYREM [Suspect]
     Indication: CATAPLEXY
     Dosage: 4.5 GM (2.25 GM, 2 IN 1 D), ORAL, 6 GM (3 GM, 2 IN 1 D), ORAL, 7.5 GM (3.75 GM, 2 IN 1 D), ORAL, 9 G
     Route: 048
     Dates: start: 20110101, end: 20110101
  10. XYREM [Suspect]
     Indication: CATAPLEXY
     Dosage: 4.5 GM (2.25 GM, 2 IN 1 D), ORAL, 6 GM (3 GM, 2 IN 1 D), ORAL, 7.5 GM (3.75 GM, 2 IN 1 D), ORAL, 9 G
     Route: 048
     Dates: start: 20110314, end: 20110101
  11. XYREM [Suspect]
     Indication: CATAPLEXY
     Dosage: 4.5 GM (2.25 GM, 2 IN 1 D), ORAL, 6 GM (3 GM, 2 IN 1 D), ORAL, 7.5 GM (3.75 GM, 2 IN 1 D), ORAL, 9 G
     Route: 048
     Dates: start: 20110101, end: 20111128
  12. MEDROXYPROGESTERONE (SOLUTION) [Concomitant]
  13. VITAMIN D3 (CAPSULES) [Concomitant]
  14. CALCIUM CARBONATE [Concomitant]
  15. LISINOPRIL/HYDROCHLOORTHIAZIDE (TABLETS) [Concomitant]
  16. VITAMIN B COMPLEX (TABLETS) [Concomitant]
  17. VITAMIN B-12 (TABLETS) [Concomitant]
  18. MULTI-VITAMINS [Concomitant]
  19. ZONISAMIDE [Suspect]
     Indication: PRODUCT USED FOR UNKNOWN INDICATION
     Dosage: 100 MG (100 MG, 1 IN 1 D), ORAL
     Route: 048
     Dates: start: 20110725, end: 20111128
  20. SENNOSIDES/DOCUSATE (TABLETS) [Concomitant]

REACTIONS (23)
  - ASTHENIA [None]
  - ABSCESS [None]
  - GAIT DISTURBANCE [None]
  - FLAT AFFECT [None]
  - ENCEPHALOPATHY [None]
  - HYPONATRAEMIA [None]
  - FALL [None]
  - WHITE BLOOD CELL COUNT INCREASED [None]
  - SOCIAL PROBLEM [None]
  - TREATMENT NONCOMPLIANCE [None]
  - SCOLIOSIS [None]
  - SPEECH DISORDER [None]
  - LEFT ATRIAL DILATATION [None]
  - MEMORY IMPAIRMENT [None]
  - SINUS TACHYCARDIA [None]
  - WEIGHT DECREASED [None]
  - ABNORMAL BEHAVIOUR [None]
  - KYPHOSCOLIOSIS [None]
  - CONCUSSION [None]
  - CONFUSIONAL STATE [None]
  - MENTAL STATUS CHANGES [None]
  - STARING [None]
  - FOOT FRACTURE [None]
